FAERS Safety Report 7434496-8 (Version None)
Quarter: 2011Q2

REPORT INFORMATION
  Report Type: 
  Country: None (occurrence: None)
  Receive Date: 20110415
  Receipt Date: 20110328
  Transmission Date: 20111010
  Serious: Yes (Hospitalization)
  Sender: FDA-Public Use
  Company Number: 030205

PATIENT
  Sex: Female

DRUGS (10)
  1. PROGRAF [Suspect]
     Indication: RHEUMATOID ARTHRITIS
     Dosage: 2 MG, ORAL
     Route: 048
     Dates: start: 20091124
  2. DEXTROMETHORPHAN HYDROBROMIDE [Concomitant]
  3. DICLOFENAC SODIUM [Concomitant]
  4. KETOPROFEN [Concomitant]
  5. CIMZIA [Suspect]
     Indication: RHEUMATOID ARTHRITIS
     Dosage: 400 MG 1X2 WEEKS, STUDY: 275-08-003:WEEK 0,2 AND 4 SUBCUTANEOUS (200 MG 1X2 WEEKS, STUDY: 275--08-00
     Route: 058
     Dates: start: 20091222
  6. CIMZIA [Suspect]
     Indication: RHEUMATOID ARTHRITIS
     Dosage: 400 MG 1X2 WEEKS, STUDY: 275-08-003:WEEK 0,2 AND 4 SUBCUTANEOUS (200 MG 1X2 WEEKS, STUDY: 275--08-00
     Route: 058
     Dates: start: 20100709
  7. RABEPRAZOLE SODIUM [Concomitant]
  8. PREDNISOLONE [Suspect]
     Indication: RHEUMATOID ARTHRITIS
     Dosage: 5 MG, ORAL
     Route: 048
     Dates: start: 20081022
  9. TEPRENONE [Concomitant]
  10. AMBROXOL HYDROCHLORIDE [Concomitant]

REACTIONS (12)
  - BRONCHOPNEUMONIA [None]
  - INTERNATIONAL NORMALISED RATIO INCREASED [None]
  - PROTHROMBIN TIME PROLONGED [None]
  - BLOOD UREA INCREASED [None]
  - INFECTION [None]
  - FIBRIN D DIMER INCREASED [None]
  - HYPOXIA [None]
  - FIBRIN DEGRADATION PRODUCTS INCREASED [None]
  - SEPTIC SHOCK [None]
  - ALANINE AMINOTRANSFERASE INCREASED [None]
  - BLOOD CREATININE INCREASED [None]
  - ASPARTATE AMINOTRANSFERASE INCREASED [None]
